FAERS Safety Report 24216530 (Version 1)
Quarter: 2024Q3

REPORT INFORMATION
  Report Type: Spontaneous
  Country: US (occurrence: US)
  Receive Date: 20240816
  Receipt Date: 20240816
  Transmission Date: 20241017
  Serious: Yes (Other)
  Sender: BRISTOL MYERS SQUIBB
  Company Number: US-BRISTOL-MYERS SQUIBB COMPANY-2024-128271

PATIENT
  Age: 64 Year
  Sex: Male

DRUGS (1)
  1. ELIQUIS [Suspect]
     Active Substance: APIXABAN
     Indication: Pulmonary hypertension
     Route: 048

REACTIONS (6)
  - Product use issue [Unknown]
  - Atrial fibrillation [Unknown]
  - Fatigue [Unknown]
  - Dizziness [Unknown]
  - Pulmonary thrombosis [Unknown]
  - Off label use [Unknown]
